FAERS Safety Report 4963997-7 (Version None)
Quarter: 2006Q2

REPORT INFORMATION
  Report Type: 
  Country: None (occurrence: None)
  Receive Date: 20060405
  Receipt Date: 20060308
  Transmission Date: 20061013
  Serious: Yes (Hospitalization)
  Sender: FDA-Public Use
  Company Number: US-MERCK-0603USA01423

PATIENT
  Sex: Female

DRUGS (5)
  1. COZAAR [Suspect]
     Indication: BLOOD PRESSURE INCREASED
     Route: 048
     Dates: start: 20041001, end: 20041001
  2. COZAAR [Suspect]
     Route: 048
     Dates: start: 20041001, end: 20041001
  3. COZAAR [Suspect]
     Route: 048
     Dates: start: 20041001, end: 20041001
  4. COZAAR [Suspect]
     Route: 048
     Dates: start: 20041001, end: 20041001
  5. CLONIDINE [Concomitant]
     Route: 065
     Dates: start: 20041001

REACTIONS (3)
  - BLOOD PRESSURE INCREASED [None]
  - DRUG INEFFECTIVE [None]
  - HEADACHE [None]
